FAERS Safety Report 9523206 (Version 1)
Quarter: 2013Q3

REPORT INFORMATION
  Report Type: Report from Study
  Country: BE (occurrence: BE)
  Receive Date: 20130913
  Receipt Date: 20130913
  Transmission Date: 20140515
  Serious: Yes (Other)
  Sender: FDA-Public Use
  Company Number: BE-GLAXOSMITHKLINE-B0922428A

PATIENT
  Age: 74 Year
  Sex: Male
  Weight: 66 kg

DRUGS (7)
  1. MELPHALAN [Suspect]
     Indication: PLASMA CELL MYELOMA
     Dosage: 16MG PER DAY
     Route: 048
     Dates: start: 20100409, end: 20100830
  2. THALIDOMIDE [Suspect]
     Indication: PLASMA CELL MYELOMA
     Dosage: 200MG PER DAY
     Route: 048
     Dates: start: 20100409, end: 20100830
  3. PREDNISONE [Suspect]
     Indication: PLASMA CELL MYELOMA
     Dosage: 120MG PER DAY
     Route: 048
     Dates: start: 20100409, end: 20100830
  4. DEXAMETHASONE [Concomitant]
     Indication: PLASMA CELL MYELOMA
     Dosage: 8MG PER DAY
     Route: 048
     Dates: start: 20130201
  5. ASAFLOW [Concomitant]
     Indication: PROPHYLAXIS
     Dosage: 80MG PER DAY
     Route: 048
     Dates: start: 20100314
  6. CLEXANE [Concomitant]
     Indication: PROPHYLAXIS
     Dosage: 40MG PER DAY
     Route: 058
     Dates: start: 20130201
  7. OMEPRAZOLE [Concomitant]
     Indication: GASTRITIS PROPHYLAXIS
     Dosage: 20MG PER DAY
     Route: 048
     Dates: start: 20100316

REACTIONS (1)
  - Squamous cell carcinoma [Recovered/Resolved]
